FAERS Safety Report 12610819 (Version 2)
Quarter: 2017Q1

REPORT INFORMATION
  Report Type: Spontaneous
  Country: US (occurrence: US)
  Receive Date: 20160801
  Receipt Date: 20170106
  Transmission Date: 20170428
  Serious: No
  Sender: FDA-Public Use
  Company Number: US-PFIZER INC-2016329531

PATIENT
  Age: 65 Year
  Sex: Female
  Weight: 106.59 kg

DRUGS (6)
  1. RAPAMUNE [Suspect]
     Active Substance: SIROLIMUS
     Indication: LUNG TRANSPLANT REJECTION
     Dosage: 1 MG, 1 MG TABS: 1 PILL A DAY BY MOUTH
     Route: 048
     Dates: start: 201603, end: 20160609
  2. AZITHROMYCIN ANHYDROUS. [Concomitant]
     Active Substance: AZITHROMYCIN ANHYDROUS
     Dosage: 1 DF, UNK
     Dates: start: 200808
  3. RAPAMUNE [Suspect]
     Active Substance: SIROLIMUS
     Indication: LUNG TRANSPLANT
     Dosage: 1 MG, 1X/DAY
     Route: 048
     Dates: start: 201603, end: 201604
  4. PREDNISONE. [Concomitant]
     Active Substance: PREDNISONE
     Dosage: UNK
  5. LANTUS [Concomitant]
     Active Substance: INSULIN GLARGINE
     Indication: DIABETES MELLITUS
     Dosage: 12 IU, DAILY (CAN VARY IF PREDNISONE IS INCREASED)
     Dates: start: 200808
  6. RAPAMUNE [Suspect]
     Active Substance: SIROLIMUS
     Dosage: UNK
     Dates: start: 20161215

REACTIONS (4)
  - Fluid retention [Recovering/Resolving]
  - Product use issue [Unknown]
  - Gout [Recovered/Resolved]
  - Peripheral swelling [Recovered/Resolved]

NARRATIVE: CASE EVENT DATE: 201604
